FAERS Safety Report 5152976-5 (Version None)
Quarter: 2006Q4

REPORT INFORMATION
  Report Type: 
  Country: None (occurrence: None)
  Receive Date: 20061113
  Receipt Date: 20061113
  Transmission Date: 20070319
  Serious: Yes (Disabling, Other)
  Sender: FDA-Public Use
  Company Number: None

PATIENT
  Age: 31 Year
  Sex: Female
  Weight: 90.7194 kg

DRUGS (2)
  1. EFFEXOR XR [Suspect]
     Indication: DEPRESSION
     Dosage: 150MG   A DAY  PO
     Route: 048
     Dates: start: 20040201, end: 20061109
  2. EFFEXOR XR [Concomitant]

REACTIONS (9)
  - ALCOHOLISM [None]
  - DEPRESSION [None]
  - DRUG DEPENDENCE [None]
  - FLATULENCE [None]
  - HYPERHIDROSIS [None]
  - LOSS OF LIBIDO [None]
  - MANIA [None]
  - WEIGHT INCREASED [None]
  - WEIGHT LOSS POOR [None]
